FAERS Safety Report 5965638-9 (Version None)
Quarter: 2008Q4

REPORT INFORMATION
  Report Type: 
  Country: None (occurrence: None)
  Receive Date: 20081119
  Receipt Date: 20080630
  Transmission Date: 20090506
  Serious: Yes (Other)
  Sender: FDA-Public Use
  Company Number: 2008S1011498

PATIENT
  Age: 33 Year
  Sex: Female

DRUGS (4)
  1. ETOPOSIDE [Suspect]
     Indication: GESTATIONAL TROPHOBLASTIC TUMOUR
  2. CYCLOPHOSPHAMIDE [Concomitant]
  3. DACTINOMYCIN [Concomitant]
  4. METHOTREXATE [Concomitant]

REACTIONS (1)
  - DRUG HYPERSENSITIVITY [None]
